FAERS Safety Report 8936611 (Version 3)
Quarter: 2013Q2

REPORT INFORMATION
  Report Type: Spontaneous
  Country: CN (occurrence: CN)
  Receive Date: 20121130
  Receipt Date: 20130626
  Transmission Date: 20140414
  Serious: Yes (Hospitalization)
  Sender: FDA-Public Use
  Company Number: CN-ASTRAZENECA-2012SE81502

PATIENT
  Age: 62 Year
  Sex: Female

DRUGS (1)
  1. PLENDIL [Suspect]
     Indication: HYPERTENSION
     Route: 048
     Dates: start: 201207

REACTIONS (6)
  - Intracranial aneurysm [Unknown]
  - Hypertension [Unknown]
  - Cerebral haemorrhage [Unknown]
  - Hydrocephalus [Unknown]
  - Blood pressure fluctuation [Recovered/Resolved]
  - Drug ineffective [Recovered/Resolved]
